FAERS Safety Report 18239135 (Version 1)
Quarter: 2020Q3

REPORT INFORMATION
  Report Type: Spontaneous
  Country: US (occurrence: US)
  Receive Date: 20200907
  Receipt Date: 20200907
  Transmission Date: 20201103
  Serious: No
  Sender: FDA-Public Use
  Company Number: US-009507513-2009USA000542

PATIENT
  Sex: Female

DRUGS (1)
  1. GANIRELIX ACETATE INJECTION [Suspect]
     Active Substance: GANIRELIX ACETATE
     Indication: INFERTILITY FEMALE
     Dosage: STRENGTH: 250 MCG/0.5 M, 250 MICROGRAM
     Route: 058
     Dates: start: 20200707

REACTIONS (5)
  - Dermatitis contact [Unknown]
  - Skin warm [Unknown]
  - Skin mass [Unknown]
  - Skin abrasion [Unknown]
  - Rash erythematous [Unknown]

NARRATIVE: CASE EVENT DATE: 2020
